FAERS Safety Report 4352572-3 (Version None)
Quarter: 2004Q2

REPORT INFORMATION
  Report Type: 
  Country: None (occurrence: None)
  Receive Date: 20040427
  Receipt Date: 20040205
  Transmission Date: 20050107
  Serious: No
  Sender: FDA-Public Use
  Company Number: WAES 0402USA00733

PATIENT

DRUGS (3)
  1. EMEND [Suspect]
     Indication: PROPHYLACTIC CHEMOTHERAPY
     Dosage: SEE IMAGE
     Route: 048
  2. GEMZAR [Concomitant]
  3. CISPLATIN [Concomitant]

REACTIONS (1)
  - DRUG INEFFECTIVE [None]
